FAERS Safety Report 7351593-6 (Version None)
Quarter: 2011Q1

REPORT INFORMATION
  Report Type: 
  Country: None (occurrence: None)
  Receive Date: 20110314
  Receipt Date: 20110309
  Transmission Date: 20110831
  Serious: Yes (Disabling)
  Sender: FDA-Public Use
  Company Number: NO-BRISTOL-MYERS SQUIBB COMPANY-15596778

PATIENT
  Age: 27 Year
  Sex: Female

DRUGS (1)
  1. KENACORT-T INJ 40 MG/ML [Suspect]
     Indication: HYPERSENSITIVITY
     Dosage: 1DF= 40 MG/ML X 1 ML
     Route: 030
     Dates: start: 20100428

REACTIONS (1)
  - LIPOATROPHY [None]
